FAERS Safety Report 6225939-6 (Version None)
Quarter: 2009Q2

REPORT INFORMATION
  Report Type: 
  Country: None (occurrence: None)
  Receive Date: 20090612
  Receipt Date: 20090505
  Transmission Date: 20091009
  Serious: Yes (Hospitalization)
  Sender: FDA-Public Use
  Company Number: US-ABBOTT-09P-163-0571650-00

PATIENT
  Sex: Female
  Weight: 52.21 kg

DRUGS (1)
  1. HUMIRA [Suspect]
     Indication: CROHN'S DISEASE
     Route: 058
     Dates: start: 20071106, end: 20080801

REACTIONS (3)
  - ASPERGILLOSIS [None]
  - BRONCHITIS [None]
  - PNEUMONIA [None]
